FAERS Safety Report 21292224 (Version 7)
Quarter: 2024Q1

REPORT INFORMATION
  Report Type: Report from Study
  Country: JP (occurrence: JP)
  Receive Date: 20220905
  Receipt Date: 20240329
  Transmission Date: 20240410
  Serious: Yes (Death, Life-Threatening, Hospitalization, Other)
  Sender: FDA-Public Use
  Company Number: JP-ASTELLAS-2022JP013030

PATIENT
  Age: 76 Year
  Sex: Male
  Weight: 62.7 kg

DRUGS (9)
  1. ENFORTUMAB VEDOTIN [Suspect]
     Active Substance: ENFORTUMAB VEDOTIN
     Indication: Transitional cell carcinoma
     Route: 041
     Dates: start: 20220322, end: 20220405
  2. ENFORTUMAB VEDOTIN [Suspect]
     Active Substance: ENFORTUMAB VEDOTIN
     Route: 041
     Dates: start: 20220426, end: 20220426
  3. ENFORTUMAB VEDOTIN [Suspect]
     Active Substance: ENFORTUMAB VEDOTIN
     Route: 041
     Dates: start: 20220510, end: 20220510
  4. ENFORTUMAB VEDOTIN [Suspect]
     Active Substance: ENFORTUMAB VEDOTIN
     Route: 041
     Dates: start: 20220531, end: 20220607
  5. ENFORTUMAB VEDOTIN [Suspect]
     Active Substance: ENFORTUMAB VEDOTIN
     Route: 041
     Dates: start: 20220621, end: 20220726
  6. DIPHENHYDRAMINE [Concomitant]
     Active Substance: DIPHENHYDRAMINE
     Indication: Urticaria
     Dosage: APPROPRIATE AMOUNT (MG), SEVERAL TIMES/DAY
     Route: 050
     Dates: start: 20220726, end: 20220920
  7. Glycyron [Concomitant]
     Indication: Blood alkaline phosphatase increased
     Route: 048
     Dates: start: 20220806, end: 20220812
  8. Glycyron [Concomitant]
     Indication: Aspartate aminotransferase increased
  9. Glycyron [Concomitant]
     Indication: Alanine aminotransferase increased

REACTIONS (7)
  - Anaemia [Fatal]
  - Gamma-glutamyltransferase increased [Not Recovered/Not Resolved]
  - Urticaria [Recovered/Resolved]
  - Blood alkaline phosphatase increased [Not Recovered/Not Resolved]
  - Aspartate aminotransferase increased [Not Recovered/Not Resolved]
  - Alanine aminotransferase increased [Recovered/Resolved]
  - Cystitis [Recovering/Resolving]

NARRATIVE: CASE EVENT DATE: 20220726
